FAERS Safety Report 10674161 (Version 1)
Quarter: 2014Q4

REPORT INFORMATION
  Report Type: Spontaneous
  Country: NP (occurrence: NP)
  Receive Date: 20141224
  Receipt Date: 20141224
  Transmission Date: 20150529
  Serious: Yes (Death)
  Sender: FDA-Public Use
  Company Number: NP-PFIZER INC-2014353735

PATIENT
  Age: 34 Year
  Sex: Male

DRUGS (1)
  1. ATGAM [Suspect]
     Active Substance: EQUINE THYMOCYTE IMMUNE GLOBULIN
     Dosage: UNK
     Route: 042

REACTIONS (1)
  - Haemorrhage intracranial [Fatal]
